FAERS Safety Report 7067769-1 (Version None)
Quarter: 2010Q4

REPORT INFORMATION
  Report Type: 
  Country: None (occurrence: None)
  Receive Date: 20101028
  Receipt Date: 20100312
  Transmission Date: 20110411
  Serious: No
  Sender: FDA-Public Use
  Company Number: A0842611A

PATIENT
  Age: 78 Year
  Sex: Female

DRUGS (8)
  1. SEREVENT [Suspect]
     Indication: PRODUCT USED FOR UNKNOWN INDICATION
     Dosage: 1PUFF TWICE PER DAY
     Route: 055
     Dates: start: 20040923
  2. DILTIAZEM [Concomitant]
  3. PREVACID [Concomitant]
  4. LEVOTHYROXINE SODIUM [Concomitant]
  5. BACLOFEN [Concomitant]
  6. TRAMADOL HCL [Concomitant]
  7. LASIX [Concomitant]
  8. ZOLOFT [Concomitant]

REACTIONS (2)
  - DYSPNOEA [None]
  - PRODUCT QUALITY ISSUE [None]
